FAERS Safety Report 5244557-X (Version None)
Quarter: 2007Q1

REPORT INFORMATION
  Report Type: 
  Country: None (occurrence: None)
  Receive Date: 20061201
  Receipt Date: 20060817
  Transmission Date: 20070707
  Serious: No
  Sender: FDA-Public Use
  Company Number: 2006PV019678

PATIENT
  Age: 57 Year
  Sex: Female
  Weight: 122.4712 kg

DRUGS (5)
  1. BYETTA [Suspect]
     Indication: DIABETES MELLITUS NON-INSULIN-DEPENDENT
     Dosage: 5 MCG; BID; SC
     Route: 058
     Dates: start: 20060816
  2. LANTUS [Concomitant]
  3. INSULIN [Concomitant]
  4. GLUCOPAGE ^BRISTOL-MYERS SQUIBB^ [Concomitant]
  5. ACTOS [Concomitant]

REACTIONS (7)
  - DIARRHOEA [None]
  - DIZZINESS [None]
  - DRUG INEFFECTIVE [None]
  - FEELING ABNORMAL [None]
  - HEADACHE [None]
  - NAUSEA [None]
  - SOMNOLENCE [None]
